FAERS Safety Report 24815790 (Version 4)
Quarter: 2025Q1

REPORT INFORMATION
  Report Type: Report from Study
  Country: CL (occurrence: CL)
  Receive Date: 20250107
  Receipt Date: 20250131
  Transmission Date: 20250409
  Serious: Yes (Hospitalization, Other)
  Sender: TAKEDA
  Company Number: CL-TAKEDA-2025TUS000840

PATIENT
  Age: 19 Year
  Sex: Male
  Weight: 54 kg

DRUGS (2)
  1. IDURSULFASE [Suspect]
     Active Substance: IDURSULFASE
     Indication: Mucopolysaccharidosis II
     Dosage: 0.5 MILLIGRAM/KILOGRAM, 1/WEEK
  2. IDURSULFASE [Suspect]
     Active Substance: IDURSULFASE
     Indication: Supplementation therapy
     Dosage: UNK UNK, 1/WEEK

REACTIONS (13)
  - Altered state of consciousness [Unknown]
  - Brain malformation [Recovering/Resolving]
  - Diabetes insipidus [Unknown]
  - Pyrexia [Unknown]
  - Hypernatraemia [Recovering/Resolving]
  - Decreased appetite [Recovering/Resolving]
  - Discouragement [Recovering/Resolving]
  - Abnormal faeces [Recovering/Resolving]
  - Treatment failure [Unknown]
  - Productive cough [Unknown]
  - Bronchitis [Recovering/Resolving]
  - Product dose omission issue [Unknown]
  - Dyspnoea [Unknown]

NARRATIVE: CASE EVENT DATE: 20241220
